FAERS Safety Report 4394048-3 (Version None)
Quarter: 2004Q3

REPORT INFORMATION
  Report Type: 
  Country: None (occurrence: None)
  Receive Date: 20040708
  Receipt Date: 20040629
  Transmission Date: 20050211
  Serious: Yes (Other)
  Sender: FDA-Public Use
  Company Number: 2004043666

PATIENT
  Sex: Male

DRUGS (2)
  1. FRESHBURST LISTERINE MOUTHWASH (EUCALYPTOL, MENTHOL, METHYL SALICYLATE [Suspect]
     Indication: DENTAL CARE
     Dosage: ORAL
     Route: 048
     Dates: start: 19960101, end: 20040629
  2. ACETYLSALIYCLIC ACID (ACETYLSALIYCLIC ACID) [Concomitant]

REACTIONS (1)
  - LIP NEOPLASM MALIGNANT STAGE UNSPECIFIED [None]
